FAERS Safety Report 9397680 (Version 2)
Quarter: 2013Q3

REPORT INFORMATION
  Report Type: Spontaneous
  Country: NZ (occurrence: NZ)
  Receive Date: 20130712
  Receipt Date: 20130823
  Transmission Date: 20140515
  Serious: Yes (Death, Hospitalization, Other)
  Sender: FDA-Public Use
  Company Number: NZ-B.I. PHARMACEUTICALS,INC./RIDGEFIELD-2013-AU-00838AU

PATIENT
  Age: 72 Year
  Sex: Female
  Weight: 65 kg

DRUGS (7)
  1. PRADAXA [Suspect]
     Indication: ATRIAL FIBRILLATION
     Dosage: 220 MG
     Dates: start: 20130523
  2. DIGOXIN [Concomitant]
     Dosage: 250 MCG
  3. ALLOPURINOL [Concomitant]
  4. METFORMIN [Concomitant]
     Dosage: 2 G
  5. ASPIRIN [Concomitant]
     Dosage: 75 MG
  6. SIMVASTATIN [Concomitant]
     Dosage: 40 MG
  7. FUROSEMIDE [Concomitant]
     Dosage: VARYING DOSES

REACTIONS (7)
  - Pneumonia [Fatal]
  - Cardiac failure [Fatal]
  - Pulmonary embolism [Fatal]
  - Dyspnoea [Fatal]
  - Renal failure [Fatal]
  - Hepatic failure [Fatal]
  - Toxicity to various agents [Unknown]
